FAERS Safety Report 5642755-4 (Version None)
Quarter: 2008Q1

REPORT INFORMATION
  Report Type: 
  Country: None (occurrence: None)
  Receive Date: 20080131
  Receipt Date: 20071207
  Transmission Date: 20080703
  Serious: Yes (Other)
  Sender: FDA-Public Use
  Company Number: PHEH2007US15670

PATIENT
  Sex: Female

DRUGS (2)
  1. TEKTURNA [Suspect]
  2. NORVASC [Suspect]

REACTIONS (1)
  - LIP SWELLING [None]
